FAERS Safety Report 17953007 (Version 2)
Quarter: 2020Q3

REPORT INFORMATION
  Report Type: Spontaneous
  Country: US (occurrence: US)
  Receive Date: 20200627
  Receipt Date: 20200821
  Transmission Date: 20201103
  Serious: No
  Sender: FDA-Public Use
  Company Number: US-ASTRAZENECA-2020SE80789

PATIENT
  Sex: Female

DRUGS (2)
  1. SYNJARDY [Concomitant]
     Active Substance: EMPAGLIFLOZIN\METFORMIN HYDROCHLORIDE
     Indication: TYPE 2 DIABETES MELLITUS
     Route: 065
  2. BYDUREON BCISE [Suspect]
     Active Substance: EXENATIDE
     Indication: TYPE 2 DIABETES MELLITUS
     Route: 058

REACTIONS (8)
  - Circumstance or information capable of leading to medication error [Unknown]
  - Device leakage [Unknown]
  - Injection site mass [Recovered/Resolved]
  - Injection site haemorrhage [Unknown]
  - Drug delivery system issue [Unknown]
  - Wrong technique in device usage process [Unknown]
  - Injection site bruising [Recovered/Resolved]
  - Incorrect dose administered [Unknown]
